FAERS Safety Report 7503596-6 (Version None)
Quarter: 2011Q2

REPORT INFORMATION
  Report Type: 
  Country: None (occurrence: None)
  Receive Date: 20110518
  Receipt Date: 20110503
  Transmission Date: 20111010
  Serious: Yes (Other)
  Sender: FDA-Public Use
  Company Number: AUR-APL-2011-01532

PATIENT
  Age: 23 Year
  Sex: Female

DRUGS (4)
  1. INSULIN [Suspect]
  2. ORAL CONTRACEPTIVE PILL (NOS) [Suspect]
  3. METFORMIN HYDROCHLORIDE [Suspect]
  4. SIMVASTATIN [Suspect]

REACTIONS (3)
  - PUPIL FIXED [None]
  - BLINDNESS TRANSIENT [None]
  - DIABETIC KETOACIDOSIS [None]
